FAERS Safety Report 5198463-X (Version None)
Quarter: 2007Q1

REPORT INFORMATION
  Report Type: 
  Country: None (occurrence: None)
  Receive Date: 20070104
  Receipt Date: 20061228
  Transmission Date: 20070707
  Serious: Yes (Other)
  Sender: FDA-Public Use
  Company Number: US-MERCK-0701USA00123

PATIENT
  Age: 83 Year
  Sex: Male

DRUGS (2)
  1. PROSCAR [Suspect]
     Indication: PROSTATE EXAMINATION ABNORMAL
     Route: 048
     Dates: start: 20020101, end: 20061101
  2. DEPAKOTE [Concomitant]
     Route: 065

REACTIONS (2)
  - BREAST CANCER [None]
  - BREAST CANCER MALE [None]
